FAERS Safety Report 9289146 (Version 1)
Quarter: 2013Q2

REPORT INFORMATION
  Report Type: Spontaneous
  Country: US (occurrence: None)
  Receive Date: 20130509
  Receipt Date: 20130509
  Transmission Date: 20140414
  Serious: Yes (Hospitalization)
  Sender: FDA-Public Use
  Company Number: ACO_35782_2013

PATIENT
  Age: 50 Year
  Sex: Female

DRUGS (5)
  1. AMPYRA [Suspect]
     Indication: GAIT DISTURBANCE
     Route: 048
     Dates: end: 201304
  2. AVONEX (INTERFERON BETA-1A) [Concomitant]
  3. VALIUM (DIAZEPAM) [Concomitant]
  4. OXYBUTYNIN CHLORIDE (OXYBUTYNIN HYDROCHLORIDE) [Concomitant]
  5. GRALISE (GABAPENTIN) [Concomitant]

REACTIONS (4)
  - Infection [None]
  - Pyrexia [None]
  - Nasopharyngitis [None]
  - Gait disturbance [None]
